FAERS Safety Report 14232275 (Version 1)
Quarter: 2017Q4

REPORT INFORMATION
  Report Type: Spontaneous
  Country: CA (occurrence: CA)
  Receive Date: 20171128
  Receipt Date: 20171128
  Transmission Date: 20180321
  Serious: Yes (Other)
  Sender: FDA-Public Use
  Company Number: CA-PFIZER INC-2017508682

PATIENT
  Age: 52 Year
  Sex: Female

DRUGS (12)
  1. SULFASALAZINE. [Suspect]
     Active Substance: SULFASALAZINE
     Dosage: UNK
  2. XELJANZ [Suspect]
     Active Substance: TOFACITINIB CITRATE
     Dosage: UNK
  3. APO-AZATHIOPRINE [Suspect]
     Active Substance: AZATHIOPRINE
     Dosage: UNK
  4. HUMIRA [Suspect]
     Active Substance: ADALIMUMAB
     Dosage: 40 G, UNK
     Route: 058
  5. ENBREL [Suspect]
     Active Substance: ETANERCEPT
     Indication: RHEUMATOID ARTHRITIS
     Dosage: 50 MG, UNK
     Route: 058
  6. METHOTREXATE SODIUM. [Suspect]
     Active Substance: METHOTREXATE SODIUM
     Dosage: UNK
     Route: 048
  7. RITUXAN [Suspect]
     Active Substance: RITUXIMAB
     Dosage: 2000 MG, UNK
     Route: 065
  8. METHOTREXATE SODIUM. [Suspect]
     Active Substance: METHOTREXATE SODIUM
     Dosage: UNK
     Route: 050
  9. APO-HYDROXYQUINE [Suspect]
     Active Substance: HYDROXYCHLOROQUINE SULFATE
     Dosage: UNK
  10. ARAVA [Suspect]
     Active Substance: LEFLUNOMIDE
     Dosage: UNK
  11. METHOTREXATE SODIUM. [Suspect]
     Active Substance: METHOTREXATE SODIUM
     Dosage: UNK
     Route: 058
  12. ORENCIA [Suspect]
     Active Substance: ABATACEPT
     Dosage: 750 MG, UNK
     Route: 058

REACTIONS (9)
  - C-reactive protein abnormal [Unknown]
  - Drug hypersensitivity [Unknown]
  - Red blood cell sedimentation rate abnormal [Unknown]
  - Rash [Unknown]
  - Anaphylactic reaction [Unknown]
  - Drug intolerance [Unknown]
  - Drug ineffective [Unknown]
  - Synovitis [Unknown]
  - Blood cholesterol increased [Unknown]
